FAERS Safety Report 16457688 (Version 2)
Quarter: 2019Q3

REPORT INFORMATION
  Report Type: Spontaneous
  Country: US (occurrence: US)
  Receive Date: 20190620
  Receipt Date: 20190905
  Transmission Date: 20191004
  Serious: No
  Sender: FDA-Public Use
  Company Number: US-PFIZER INC-2016558453

PATIENT
  Age: 57 Year
  Sex: Female

DRUGS (16)
  1. EXTAVIA [Concomitant]
     Active Substance: INTERFERON BETA-1B
     Dosage: 0.5 UNK, UNK (INJECT 0.5 ML SUBJECT SUBCUTANEOUSLY EVERY OTHER DAY FOR WEEKS 3 AND 4)
     Route: 058
  2. AMBIEN [Concomitant]
     Active Substance: ZOLPIDEM TARTRATE
     Indication: SLEEP DISORDER
     Dosage: 10 MG, AS NEEDED (TAKE 2 TABLETS ORALLY AT BEDTIME ONLY WHEN NEEDED FOR SLEEP)
     Route: 048
  3. ULTRAM [Concomitant]
     Active Substance: TRAMADOL HYDROCHLORIDE
     Dosage: 100 MG, 4X/DAY (TAKE 2 TABLETS BY MOUTH EVERY 6 HOURS)
     Route: 048
  4. LYRICA [Suspect]
     Active Substance: PREGABALIN
     Dosage: 300 MG CAPSULE, 2 CAPS BY MOUTH DAILY
     Route: 048
  5. COSOPT [Concomitant]
     Active Substance: DORZOLAMIDE HYDROCHLORIDE\TIMOLOL MALEATE
     Indication: GLAUCOMA
     Dosage: 1 GTT LEFT EYE, 2X/DAY (DORZOLAMIDE HYDROCHLORIDE 22.3 MG/ML/  TIMOLOL MALEATE 6.8MG/ML)
     Route: 047
  6. EXTAVIA [Concomitant]
     Active Substance: INTERFERON BETA-1B
     Dosage: 0.25 UNK, UNK (INJECT 0.25 ML SUBCUTANEOUSLY EVERY OTHER DAY FOR WEEKS 1 AND 2)
     Route: 058
  7. EXTAVIA [Concomitant]
     Active Substance: INTERFERON BETA-1B
     Dosage: 1 UNK, UNK (INJECT 1 ML SUBCUTANEOUSLY EVERY OTHER DAY AFTER COMPLETING 6 WEEKS SCHEDULED DOSE TITR)
     Route: 058
  8. LYRICA [Suspect]
     Active Substance: PREGABALIN
     Dosage: 600 MG, DAILY (300 MG CAP, TWO CAPSULES DAILY)
     Route: 048
  9. LIPITOR [Concomitant]
     Active Substance: ATORVASTATIN CALCIUM
     Indication: BLOOD CHOLESTEROL ABNORMAL
     Dosage: 10 MG, DAILY
     Route: 048
  10. NORVASC [Concomitant]
     Active Substance: AMLODIPINE BESYLATE
     Dosage: 5 MG, DAILY
     Route: 048
  11. PLAVIX [Concomitant]
     Active Substance: CLOPIDOGREL BISULFATE
     Dosage: 75 MG, DAILY
     Route: 048
  12. EXTAVIA [Concomitant]
     Active Substance: INTERFERON BETA-1B
     Dosage: 0.75 UNK, UNK (INJECT 0.75 ML SUBCUTANEOUSLY EVERY OTHER DAY FOR WEEKS 5 AND 6)
     Route: 058
  13. ELIDEL [Concomitant]
     Active Substance: PIMECROLIMUS
     Dosage: UNK UNK, 2X/DAY (APPLY TO AFFECTED AREA (S) 2 TIMES A DAY)
  14. ISOPTO ATROPINE [Concomitant]
     Active Substance: ATROPINE SULFATE
     Dosage: 1 GTT, 2X/DAY(INSTILL 1 DROP IN LEFT EYE 2 TIMES A DAY)
     Route: 047
  15. SKELAXIN [METAXALONE] [Concomitant]
     Dosage: 800 MG, DAILY
     Route: 048
  16. EXTAVIA [Concomitant]
     Active Substance: INTERFERON BETA-1B
     Dosage: 1 UNK, UNK (INJECT 1 ML SUBJECT SUBCUTANEOUSLY EVERY OTHER DAY IN WEEK 7 AND THEREAFTER)
     Route: 058

REACTIONS (1)
  - Malaise [Unknown]
